FAERS Safety Report 15995091 (Version 3)
Quarter: 2021Q1

REPORT INFORMATION
  Report Type: Spontaneous
  Country: US (occurrence: US)
  Receive Date: 20190222
  Receipt Date: 20210111
  Transmission Date: 20210419
  Serious: Yes (Other)
  Sender: FDA-Public Use
  Company Number: PHEH2019US007646

PATIENT
  Sex: Male

DRUGS (1)
  1. TASIGNA [Suspect]
     Active Substance: NILOTINIB
     Indication: CHRONIC MYELOID LEUKAEMIA
     Dosage: UNK UNK, BID
     Route: 048
     Dates: start: 201311, end: 201804

REACTIONS (17)
  - Chronic kidney disease [Unknown]
  - Cerebrovascular accident [Unknown]
  - Confusional state [Unknown]
  - Pain [Unknown]
  - Anxiety [Unknown]
  - Emotional distress [Unknown]
  - Lactic acidosis [Unknown]
  - Vertigo [Unknown]
  - Carotid artery stenosis [Unknown]
  - Nausea [Unknown]
  - Diastolic dysfunction [Unknown]
  - Injury [Unknown]
  - Dizziness [Unknown]
  - Ventricular tachycardia [Unknown]
  - Vision blurred [Unknown]
  - Transient ischaemic attack [Unknown]
  - Headache [Unknown]
